FAERS Safety Report 9187679 (Version 1)
Quarter: 2013Q1

REPORT INFORMATION
  Report Type: Report from Study
  Country: US (occurrence: US)
  Receive Date: 20130325
  Receipt Date: 20130325
  Transmission Date: 20140127
  Serious: Yes (Other)
  Sender: FDA-Public Use
  Company Number: US-ACTELION-A-US2013-80782

PATIENT
  Age: 64 Year
  Sex: Male

DRUGS (1)
  1. TRACLEER [Suspect]
     Indication: PULMONARY ARTERIAL HYPERTENSION
     Route: 048

REACTIONS (8)
  - Prostate cancer [Unknown]
  - Renal failure chronic [Unknown]
  - Deep vein thrombosis [Unknown]
  - Anaemia [Unknown]
  - Coagulopathy [Unknown]
  - Leukopenia [Unknown]
  - Monoclonal gammopathy [Unknown]
  - Iron deficiency [Unknown]
